FAERS Safety Report 18811943 (Version 1)
Quarter: 2021Q1

REPORT INFORMATION
  Report Type: Spontaneous
  Country: NL (occurrence: NL)
  Receive Date: 20210130
  Receipt Date: 20210130
  Transmission Date: 20210419
  Serious: Yes (Hospitalization)
  Sender: FDA-Public Use
  Company Number: NL-ACCORD-215766

PATIENT
  Sex: Female
  Weight: 78 kg

DRUGS (5)
  1. AMLODIPINE [Concomitant]
     Active Substance: AMLODIPINE BESYLATE
     Dosage: TABLET, 10 MG (MILLIGRAM)
  2. LISINOPRIL. [Suspect]
     Active Substance: LISINOPRIL
     Indication: HYPERTENSION
     Dosage: 1D1T
     Dates: start: 20201209, end: 20210101
  3. SIMVASTATIN. [Concomitant]
     Active Substance: SIMVASTATIN
     Dosage: FILM?COATED TABLET, 20 MG (MILLIGRAM)
  4. COLECALCIFEROL [Concomitant]
     Active Substance: CHOLECALCIFEROL
     Dosage: CAPSULE, 25000 UNITS
  5. CARBASALATE [Concomitant]
     Active Substance: CARBASPIRIN
     Dosage: SACHET (POWDER), 100 MG (MILLIGRAM)

REACTIONS (1)
  - Dyspnoea [Recovering/Resolving]
